FAERS Safety Report 5171432-1 (Version None)
Quarter: 2006Q4

REPORT INFORMATION
  Report Type: 
  Country: None (occurrence: None)
  Receive Date: 20061208
  Receipt Date: 20061208
  Transmission Date: 20070319
  Serious: Yes (Hospitalization)
  Sender: FDA-Public Use
  Company Number: None

PATIENT
  Age: 83 Year
  Sex: Male
  Weight: 88.905 kg

DRUGS (7)
  1. WARFARIN SODIUM [Suspect]
     Indication: KNEE OPERATION
     Dosage: 5 MG DAILY PO
     Route: 048
  2. GLYBURIDE [Concomitant]
  3. OMEPRAZOLE [Concomitant]
  4. FUROSEMIDE [Concomitant]
  5. LEVOFLOXACIN [Concomitant]
  6. TERAZOSIN HCL [Concomitant]
  7. LISINOPRIL [Concomitant]

REACTIONS (3)
  - GASTROINTESTINAL HAEMORRHAGE [None]
  - HAEMATEMESIS [None]
  - MELAENA [None]
